FAERS Safety Report 8470220-8 (Version None)
Quarter: 2012Q2

REPORT INFORMATION
  Report Type: 
  Country: None (occurrence: None)
  Receive Date: 20120621
  Receipt Date: 20120621
  Transmission Date: 20120825
  Serious: Yes (Other)
  Sender: FDA-Public Use
  Company Number: None

PATIENT
  Age: 49 Year
  Sex: Female
  Weight: 81.6475 kg

DRUGS (1)
  1. HUMIRA [Suspect]
     Indication: PSORIASIS
     Dosage: 40 MG EVERY OTHER WEEK CUTANEOUS
     Route: 003
     Dates: start: 20120407, end: 20120505

REACTIONS (3)
  - ARTHRALGIA [None]
  - SWELLING [None]
  - PSORIASIS [None]
